FAERS Safety Report 5488273-8 (Version None)
Quarter: 2007Q4

REPORT INFORMATION
  Report Type: 
  Country: None (occurrence: None)
  Receive Date: 20071005
  Receipt Date: 20070705
  Transmission Date: 20080405
  Serious: No
  Sender: FDA-Public Use
  Company Number: PHEH2007US09705

PATIENT
  Sex: Female

DRUGS (3)
  1. TEKTURNA [Suspect]
     Dosage: ORAL
     Route: 048
  2. BENICAR [Suspect]
  3. TOPROL-XL [Suspect]

REACTIONS (1)
  - BREAST PAIN [None]
